FAERS Safety Report 5474019-6 (Version None)
Quarter: 2007Q4

REPORT INFORMATION
  Report Type: 
  Country: None (occurrence: None)
  Receive Date: 20071002
  Receipt Date: 20070920
  Transmission Date: 20080405
  Serious: Yes (Hospitalization)
  Sender: FDA-Public Use
  Company Number: PHHO2002BE04896

PATIENT
  Age: 70 Year
  Sex: Female

DRUGS (6)
  1. HUMULIN 70/30 [Concomitant]
     Indication: HYPERGLYCAEMIA
     Dates: start: 20011009
  2. TAMOXIFEN CITRATE [Suspect]
     Indication: BREAST CANCER
     Route: 048
     Dates: start: 20011207, end: 20021118
  3. HYDERGINE [Concomitant]
     Indication: COGNITIVE DISORDER
  4. GLUCOPHAGE [Concomitant]
     Indication: DIABETES MELLITUS
  5. LANOXIN [Suspect]
  6. MARCUMAR [Concomitant]

REACTIONS (7)
  - CEREBROVASCULAR ACCIDENT [None]
  - DERMATITIS [None]
  - DYSARTHRIA [None]
  - FACIAL PARESIS [None]
  - FALL [None]
  - HEMIPARESIS [None]
  - RASH ERYTHEMATOUS [None]
